FAERS Safety Report 9797867 (Version 2)
Quarter: 2014Q1

REPORT INFORMATION
  Report Type: Spontaneous
  Country: US (occurrence: US)
  Receive Date: 20140106
  Receipt Date: 20140324
  Transmission Date: 20141002
  Serious: Yes (Hospitalization, Other)
  Sender: FDA-Public Use
  Company Number: US-BAYER-2014-001370

PATIENT
  Age: 32 Year
  Sex: Female
  Weight: 106.58 kg

DRUGS (17)
  1. YAZ [Suspect]
     Indication: CONTRACEPTION
     Dosage: UNK
     Dates: start: 20120102, end: 20120102
  2. ALDOMET [Concomitant]
     Dosage: 500 MG, UNK
     Route: 048
     Dates: start: 20111228
  3. EPHEDRINE [Concomitant]
     Dosage: UNK
     Route: 042
     Dates: start: 20111228
  4. OXYTOCIN [Concomitant]
     Dosage: UNK
     Route: 042
     Dates: start: 20111228
  5. VERSED [Concomitant]
     Dosage: UNK
     Route: 042
     Dates: start: 20111228
  6. FENTANYL [Concomitant]
     Dosage: UNK
     Route: 042
     Dates: start: 20111228
  7. MAGNESIUM SULFATE [Concomitant]
     Dosage: 2 G/DL, UNK
     Route: 042
     Dates: start: 20111228
  8. BETAMETHASONE [Concomitant]
     Dosage: UNK
     Dates: start: 20111228
  9. HYDRALAZINE [Concomitant]
     Dosage: 5 MG, UNK
     Route: 042
     Dates: start: 20111228
  10. ZANTAC [Concomitant]
     Dosage: 50 MG, UNK
     Route: 042
     Dates: start: 20111228
  11. BIAXIN [Concomitant]
     Dosage: UNK
     Route: 042
     Dates: start: 20111228
  12. ESGIC [Concomitant]
     Dosage: 2 TABS
     Route: 048
     Dates: start: 20111229
  13. TYLOX [Concomitant]
     Dosage: 1-2 CAPSULES AS NEEDED
     Route: 048
     Dates: start: 20111231
  14. NIFEDIPINE [Concomitant]
     Dosage: 90 MG, QD
     Route: 048
     Dates: start: 20111231
  15. PRENATAL VITAMINS [VIT C,B5,B12,D2,B3,B6,RETINOL PALMIT,B2,B1 MONO [Concomitant]
     Dosage: 1 TAB DAILY
     Route: 048
     Dates: start: 20111231
  16. MILK OF MAGNESIA [Concomitant]
     Dosage: 30 ML, UNK
     Route: 048
     Dates: start: 20111231
  17. FERROUS SULFATE [Concomitant]
     Dosage: 325 MG, UNK
     Route: 048

REACTIONS (3)
  - Pulmonary embolism [None]
  - Injury [None]
  - Cardiac disorder [None]
